FAERS Safety Report 6159966-4 (Version None)
Quarter: 2009Q2

REPORT INFORMATION
  Report Type: 
  Country: None (occurrence: None)
  Receive Date: 20090420
  Receipt Date: 20090407
  Transmission Date: 20091009
  Serious: Yes (Other)
  Sender: FDA-Public Use
  Company Number: CA-PURDUE-CAN_2009_0000946

PATIENT
  Sex: Female

DRUGS (1)
  1. MS CONTIN TABLETS 15 MG [Suspect]
     Indication: DRUG USE FOR UNKNOWN INDICATION
     Dosage: 45 MG, DAILY

REACTIONS (12)
  - ANOREXIA [None]
  - CHEST PAIN [None]
  - DYSPNOEA [None]
  - FATIGUE [None]
  - GASTRITIS [None]
  - JOINT SWELLING [None]
  - MEMORY IMPAIRMENT [None]
  - MUSCLE SPASMS [None]
  - OEDEMA PERIPHERAL [None]
  - PAIN [None]
  - PULMONARY CONGESTION [None]
  - SOMNOLENCE [None]
